FAERS Safety Report 10466431 (Version 2)
Quarter: 2015Q1

REPORT INFORMATION
  Report Type: Spontaneous
  Country: GB (occurrence: None)
  Receive Date: 20140918
  Receipt Date: 20150306
  Transmission Date: 20150720
  Serious: Yes (Death, Hospitalization)
  Sender: FDA-Public Use
  Company Number: 2530616

PATIENT
  Age: 67 Year
  Sex: Male

DRUGS (2)
  1. VINORELBINE [Suspect]
     Active Substance: VINORELBINE\VINORELBINE TARTRATE
     Indication: NON-SMALL CELL LUNG CANCER
     Dosage: SECOND CYCLE - UNCLEAR WHEN GIVEN AS GIVEN AT DIFFERENT HOSPITAL
     Route: 042
  2. CARBOPLATIN. [Suspect]
     Active Substance: CARBOPLATIN
     Indication: NON-SMALL CELL LUNG CANCER
     Dosage: SECOND CYCLE - UNCLEAR WHEN GIVEN AS GIVEN AT DIFFERENT HOSPITAL
     Route: 042

REACTIONS (1)
  - Neutropenic sepsis [None]

NARRATIVE: CASE EVENT DATE: 20140501
